FAERS Safety Report 19061215 (Version 2)
Quarter: 2021Q1

REPORT INFORMATION
  Report Type: Report from Study
  Country: CA (occurrence: CA)
  Receive Date: 20210325
  Receipt Date: 20210326
  Transmission Date: 20210420
  Serious: Yes (Hospitalization, Other)
  Sender: FDA-Public Use
  Company Number: CA-B.I. PHARMACEUTICALS,INC./RIDGEFIELD-2020-BI-063052

PATIENT
  Age: 63 Year
  Sex: Male
  Weight: 128 kg

DRUGS (1)
  1. OFEV [Suspect]
     Active Substance: NINTEDANIB
     Indication: IDIOPATHIC PULMONARY FIBROSIS
     Dosage: 300MG
     Route: 048
     Dates: start: 20190521, end: 20210317

REACTIONS (5)
  - Diverticulitis [Recovered/Resolved]
  - Anal fistula [Unknown]
  - Diarrhoea [Recovered/Resolved]
  - Intestinal perforation [Not Recovered/Not Resolved]
  - Diverticular perforation [Recovered/Resolved]

NARRATIVE: CASE EVENT DATE: 20210125
